FAERS Safety Report 26089729 (Version 3)
Quarter: 2025Q4

REPORT INFORMATION
  Report Type: Report from Study
  Country: EU (occurrence: EU)
  Receive Date: 20251125
  Receipt Date: 20251203
  Transmission Date: 20260117
  Serious: Yes (Death, Hospitalization, Other)
  Sender: ABBVIE
  Company Number: EU-ABBVIE-6563546

PATIENT
  Age: 81 Year
  Sex: Female

DRUGS (1)
  1. FOSCARBIDOPA\FOSLEVODOPA [Suspect]
     Active Substance: FOSCARBIDOPA\FOSLEVODOPA
     Indication: Parkinson^s disease
     Route: 058
     Dates: start: 20240904

REACTIONS (3)
  - Sepsis [Fatal]
  - Decubitus ulcer [Unknown]
  - Localised infection [Unknown]

NARRATIVE: CASE EVENT DATE: 20251119
